FAERS Safety Report 6191230-X (Version None)
Quarter: 2009Q2

REPORT INFORMATION
  Report Type: 
  Country: None (occurrence: None)
  Receive Date: 20090515
  Receipt Date: 20090511
  Transmission Date: 20091009
  Serious: Yes (Other)
  Sender: FDA-Public Use
  Company Number: FR-BRISTOL-MYERS SQUIBB COMPANY-14621213

PATIENT
  Age: 60 Year
  Sex: Male

DRUGS (2)
  1. HYDREA [Suspect]
     Indication: ESSENTIAL THROMBOCYTHAEMIA
     Dosage: STOPPED IN MAR09 AND RECHALLENGED IN MID APR09, AGAIN DISCONTINUED
     Dates: start: 20090301, end: 20090101
  2. KARDEGIC [Concomitant]
     Dates: start: 20090201

REACTIONS (3)
  - MYALGIA [None]
  - PYREXIA [None]
  - TREMOR [None]
